FAERS Safety Report 17467247 (Version 1)
Quarter: 2020Q1

REPORT INFORMATION
  Report Type: Other
  Country: CH (occurrence: CH)
  Receive Date: 20200227
  Receipt Date: 20200227
  Transmission Date: 20200409
  Serious: Yes (Hospitalization, Disabling)
  Sender: FDA-Public Use
  Company Number: CH-TOPROL ACQUISITION LLC-2020-TOP-000175

PATIENT
  Sex: Female
  Weight: 81 kg

DRUGS (11)
  1. FEMARA [Suspect]
     Active Substance: LETROZOLE
     Dosage: 2.5 MG 0-0-0-1 VON 12/2015, 06-2019 UND WIEDER SEIT 01-2020
     Route: 048
     Dates: start: 202001
  2. CYMBALTA [Suspect]
     Active Substance: DULOXETINE HYDROCHLORIDE
     Indication: DEPRESSION
     Dosage: UNK
     Route: 048
     Dates: start: 2015
  3. ROSUVASTATIN. [Concomitant]
     Active Substance: ROSUVASTATIN
     Dosage: 10 MG 0-0-1
     Route: 048
     Dates: start: 2016
  4. TRITTICO [Concomitant]
     Active Substance: TRAZODONE HYDROCHLORIDE
     Indication: DEPRESSION
     Dosage: 50 MG 0-0-0-1
     Route: 048
     Dates: start: 201912, end: 20200127
  5. SURMONTIL [Suspect]
     Active Substance: TRIMIPRAMINE MALEATE
     Indication: PRODUCT USED FOR UNKNOWN INDICATION
     Dosage: 50 MG, 0-0-0-1
     Route: 048
     Dates: start: 2015, end: 201912
  6. KALCIPOS [Concomitant]
     Active Substance: CALCIUM CARBONATE
     Dosage: 500/800 0-1-0
     Route: 048
     Dates: start: 2015
  7. ESOMEPRAZOLE. [Suspect]
     Active Substance: ESOMEPRAZOLE MAGNESIUM
     Indication: PRODUCT USED FOR UNKNOWN INDICATION
     Dosage: UNK
     Route: 048
     Dates: start: 201903
  8. KEYTRUDA [Suspect]
     Active Substance: PEMBROLIZUMAB
     Indication: PRODUCT USED FOR UNKNOWN INDICATION
     Dosage: UNK
     Route: 042
     Dates: start: 20190509, end: 20191227
  9. FEMARA [Suspect]
     Active Substance: LETROZOLE
     Dosage: 2.5 MG 0-0-0-1 VON 12/2015, 06-2019 UND WIEDER SEIT 01-2020
     Route: 048
     Dates: start: 201512, end: 201906
  10. PROLIA [Concomitant]
     Active Substance: DENOSUMAB
     Dosage: ALLE 6 MONATE
     Route: 058
     Dates: start: 201704, end: 201904
  11. METOPROLOL SUCCINATE. [Suspect]
     Active Substance: METOPROLOL SUCCINATE
     Indication: PRODUCT USED FOR UNKNOWN INDICATION
     Dosage: 100 MG, 1-0-0
     Route: 048
     Dates: start: 2015

REACTIONS (6)
  - Renal failure [Recovering/Resolving]
  - Hypothyroidism [Not Recovered/Not Resolved]
  - Dry mouth [Not Recovered/Not Resolved]
  - Condition aggravated [Not Recovered/Not Resolved]
  - Hypophysitis [Not Recovered/Not Resolved]
  - Polyglandular autoimmune syndrome type II [Not Recovered/Not Resolved]

NARRATIVE: CASE EVENT DATE: 201805
